FAERS Safety Report 11569956 (Version 1)
Quarter: 2015Q3

REPORT INFORMATION
  Report Type: Spontaneous
  Country: US (occurrence: None)
  Receive Date: 20150928
  Receipt Date: 20150928
  Transmission Date: 20151125
  Serious: Yes (Other)
  Sender: FDA-Public Use
  Company Number: None

PATIENT
  Age: 68 Year
  Sex: Female
  Weight: 81.19 kg

DRUGS (2)
  1. FASIODEX [Concomitant]
  2. IBRANCE [Suspect]
     Active Substance: PALBOCICLIB
     Indication: BREAST CANCER
     Route: 048
     Dates: start: 20150830, end: 20150920

REACTIONS (4)
  - Drug withdrawal syndrome [None]
  - Nausea [None]
  - Headache [None]
  - No therapeutic response [None]

NARRATIVE: CASE EVENT DATE: 20150921
